FAERS Safety Report 19569341 (Version 5)
Quarter: 2021Q4

REPORT INFORMATION
  Report Type: Report from Study
  Country: BE (occurrence: BE)
  Receive Date: 20210716
  Receipt Date: 20211005
  Transmission Date: 20220303
  Serious: Yes (Hospitalization)
  Sender: FDA-Public Use
  Company Number: BE-VERTEX PHARMACEUTICALS-2021-010446

PATIENT
  Age: 34 Year
  Sex: Female
  Weight: 48 kg

DRUGS (7)
  1. ELEXACAFTOR\IVACAFTOR\TEZACAFTOR [Suspect]
     Active Substance: ELEXACAFTOR\IVACAFTOR\TEZACAFTOR
     Indication: Cystic fibrosis
     Dosage: 200MG QD, 100MG QD, 300 MG QD
     Route: 048
     Dates: start: 20200707, end: 20210706
  2. ELEXACAFTOR\IVACAFTOR\TEZACAFTOR [Suspect]
     Active Substance: ELEXACAFTOR\IVACAFTOR\TEZACAFTOR
     Dosage: EVERY OTHER DAY
     Route: 048
     Dates: start: 20210709, end: 20210715
  3. ELEXACAFTOR\IVACAFTOR\TEZACAFTOR [Suspect]
     Active Substance: ELEXACAFTOR\IVACAFTOR\TEZACAFTOR
     Dosage: ONLY MORNING DOSE EVERY DAY
     Route: 048
     Dates: start: 20210715
  4. KALYDECO [Suspect]
     Active Substance: IVACAFTOR
     Indication: Cystic fibrosis
     Dosage: 300 MG, QD
     Route: 048
     Dates: start: 20200706, end: 20210706
  5. KALYDECO [Suspect]
     Active Substance: IVACAFTOR
     Dosage: EVERY OTHER DAY
     Route: 048
     Dates: start: 20210709, end: 20210715
  6. LORAZEPAM [Concomitant]
     Active Substance: LORAZEPAM
     Dosage: 2.5 MG, PRN
     Route: 048
  7. VALIUM [Concomitant]
     Active Substance: DIAZEPAM
     Indication: Insomnia
     Dosage: 10 MG, PRN
     Route: 048
     Dates: start: 20210707

REACTIONS (1)
  - Psychiatric decompensation [Recovered/Resolved]

NARRATIVE: CASE EVENT DATE: 20210706
